FAERS Safety Report 20864020 (Version 5)
Quarter: 2022Q4

REPORT INFORMATION
  Report Type: Report from Study
  Country: RU (occurrence: RU)
  Receive Date: 20220523
  Receipt Date: 20221007
  Transmission Date: 20230112
  Serious: Yes (Hospitalization)
  Sender: FDA-Public Use
  Company Number: RU-NOVARTISPH-NVSC2022RU117065

PATIENT
  Age: 73 Year
  Sex: Female
  Weight: 61 kg

DRUGS (13)
  1. RIBOCICLIB [Suspect]
     Active Substance: RIBOCICLIB
     Indication: Breast cancer
     Dosage: 400 MG, QD
     Route: 048
     Dates: start: 20190807
  2. LETROZOLE [Suspect]
     Active Substance: LETROZOLE
     Indication: Breast cancer
     Dosage: 2.5 MG, QD
     Route: 048
     Dates: start: 20190807
  3. INDAPAMIDE [Concomitant]
     Active Substance: INDAPAMIDE
     Indication: Hypertension
     Dosage: 2.5 MG, QD
     Route: 048
     Dates: start: 20170120
  4. THYMINE [Concomitant]
     Active Substance: THYMINE
     Indication: Leukopenia
     Dosage: 1 DOSAGE FORM, QD
     Route: 048
     Dates: start: 20190108
  5. THYMINE [Concomitant]
     Active Substance: THYMINE
     Indication: Neutropenia
  6. LOSARTAN POTASSIUM [Concomitant]
     Active Substance: LOSARTAN POTASSIUM
     Indication: Hypertension
     Dosage: 50 MG, QD
     Route: 048
     Dates: start: 20200915
  7. AMLODIPINE BESYLATE [Concomitant]
     Active Substance: AMLODIPINE BESYLATE
     Indication: Hypertension
     Dosage: 25 MG, QD
     Route: 048
     Dates: start: 20170120
  8. METOPROLOL [Concomitant]
     Active Substance: METOPROLOL
     Indication: Myocardial ischaemia
     Dosage: 50 MG, QD
     Route: 048
     Dates: start: 20211211
  9. ATORVASTATIN [Concomitant]
     Active Substance: ATORVASTATIN
     Indication: Myocardial ischaemia
     Dosage: 10 MG, QD
     Route: 048
     Dates: start: 20211211
  10. CARDIOMAGNYL [Concomitant]
     Active Substance: ASPIRIN\MAGNESIUM HYDROXIDE
     Indication: Myocardial ischaemia
     Dosage: 75 MG, QD
     Route: 048
     Dates: start: 20211211
  11. HEPARIN [Concomitant]
     Active Substance: HEPARIN SODIUM
     Indication: Varicose vein
     Dosage: UNK
     Route: 065
     Dates: start: 20211202
  12. TROXEVASIN [Concomitant]
     Indication: Varicose vein
     Dosage: UNK
     Route: 065
     Dates: start: 20211202
  13. PANCRELIPASE [Concomitant]
     Active Substance: PANCRELIPASE
     Indication: Gamma-glutamyltransferase increased
     Dosage: 1 DOSAGE FORM, QD
     Route: 048
     Dates: start: 20210511

REACTIONS (4)
  - Cataract [Recovered/Resolved]
  - Myopia [Recovered/Resolved]
  - Cataract [Recovered/Resolved]
  - Myopia [Recovered/Resolved]

NARRATIVE: CASE EVENT DATE: 20220214
